FAERS Safety Report 4368624-8 (Version None)
Quarter: 2004Q2

REPORT INFORMATION
  Report Type: 
  Country: None (occurrence: None)
  Receive Date: 20040528
  Receipt Date: 20040513
  Transmission Date: 20050107
  Serious: Yes (Hospitalization)
  Sender: FDA-Public Use
  Company Number: 2004EU001029

PATIENT
  Age: 43 Year
  Sex: Male

DRUGS (3)
  1. FK506 (TACROLIMUS) [Suspect]
     Indication: RENAL TRANSPLANT
  2. MYCOPHENOLATE MOFETIL (MYCOPHENOLATE MOFETIL) [Concomitant]
  3. PREDNISONE TAB [Concomitant]

REACTIONS (2)
  - DISEASE RECURRENCE [None]
  - GLOMERULONEPHRITIS FOCAL [None]
